FAERS Safety Report 16307540 (Version 1)
Quarter: 2019Q2

REPORT INFORMATION
  Report Type: Spontaneous
  Country: NO (occurrence: NO)
  Receive Date: 20190514
  Receipt Date: 20190514
  Transmission Date: 20190711
  Serious: Yes (Life-Threatening)
  Sender: FDA-Public Use
  Company Number: NO-TEVA-2019-NO-1048307

PATIENT
  Age: 64 Year
  Sex: Female
  Weight: 80 kg

DRUGS (6)
  1. CALCIUM FORTE [Concomitant]
     Route: 065
  2. LAMICTAL [Suspect]
     Active Substance: LAMOTRIGINE
     Indication: DEPRESSION
     Route: 065
     Dates: start: 20070610
  3. TRAMADOL ACTAVIS [Suspect]
     Active Substance: TRAMADOL
     Route: 065
  4. OMEGA-3 ACIDS [Concomitant]
     Active Substance: OMEGA-3 FATTY ACIDS
     Route: 065
  5. MULTIVITAMINE [Concomitant]
     Route: 065
  6. MAGNESIUM W/GINSENG [Concomitant]
     Route: 065

REACTIONS (4)
  - Screaming [Recovered/Resolved]
  - Tremor [Recovered/Resolved]
  - Eye symptom [Recovered/Resolved]
  - Loss of consciousness [Recovered/Resolved]

NARRATIVE: CASE EVENT DATE: 20190411
